FAERS Safety Report 10028424 (Version 1)
Quarter: 2014Q1

REPORT INFORMATION
  Report Type: Spontaneous
  Country: US (occurrence: None)
  Receive Date: 20140320
  Receipt Date: 20140320
  Transmission Date: 20141002
  Serious: Yes (Other)
  Sender: FDA-Public Use
  Company Number: AUR-APL-2014-03164

PATIENT
  Sex: 0

DRUGS (2)
  1. METFORMIN [Suspect]
     Indication: DIABETES MELLITUS
  2. GLIPIZIDE [Suspect]
     Indication: DIABETES MELLITUS

REACTIONS (1)
  - Pancreatic carcinoma [None]
